FAERS Safety Report 7350862-3 (Version None)
Quarter: 2011Q1

REPORT INFORMATION
  Report Type: 
  Country: None (occurrence: None)
  Receive Date: 20110314
  Receipt Date: 20110309
  Transmission Date: 20110831
  Serious: Yes (Other)
  Sender: FDA-Public Use
  Company Number: US-PFIZER INC-2011052259

PATIENT

DRUGS (1)
  1. GEODON [Suspect]
     Indication: BIPOLAR DISORDER
     Dosage: 80 MG, UNK
     Route: 048
     Dates: start: 20110301, end: 20110301

REACTIONS (2)
  - TARDIVE DYSKINESIA [None]
  - CONFUSIONAL STATE [None]
